FAERS Safety Report 8879704 (Version 1)
Quarter: 2012Q4

REPORT INFORMATION
  Report Type: 
  Country: US (occurrence: US)
  Receive Date: 20121101
  Receipt Date: 20121101
  Transmission Date: 20130627
  Serious: No
  Sender: FDA-Public Use
  Company Number: US-009507513-1210USA011160

PATIENT
  Age: 61 Year
  Sex: Female

DRUGS (1)
  1. DULERA [Suspect]
     Indication: ASTHMA
     Dosage: 2 DF, bid
     Route: 055
     Dates: start: 201207, end: 201208

REACTIONS (1)
  - Muscle spasms [Recovered/Resolved]
